FAERS Safety Report 7694273-X (Version None)
Quarter: 2011Q3

REPORT INFORMATION
  Report Type: 
  Country: None (occurrence: None)
  Receive Date: 20110819
  Receipt Date: 20110810
  Transmission Date: 20111222
  Serious: Yes (Death, Life-Threatening)
  Sender: FDA-Public Use
  Company Number: FR-GLAXOSMITHKLINE-B0738563A

PATIENT
  Sex: Female

DRUGS (11)
  1. CLONAZEPAM [Concomitant]
     Indication: RESTLESS LEGS SYNDROME
     Dosage: 3DROP AT NIGHT
     Route: 048
  2. SINGULAIR [Concomitant]
     Dosage: 10MG AT NIGHT
  3. SYMBICORT [Concomitant]
     Dosage: 400MG TWICE PER DAY
  4. FLUTICASONE FUROATE [Concomitant]
  5. DILTIAZEM [Concomitant]
     Indication: ATRIAL FIBRILLATION
     Dosage: 200MG PER DAY
     Route: 048
     Dates: start: 20110701
  6. FLECAINIDE ACETATE [Concomitant]
     Indication: ATRIAL FIBRILLATION
     Dosage: 200MG PER DAY
     Route: 048
     Dates: start: 20110701
  7. LORAZEPAM [Concomitant]
     Dosage: 1MG AT NIGHT
  8. DESLORATADINE [Concomitant]
     Dosage: 1UNIT AT NIGHT
  9. LASIX [Concomitant]
     Indication: CARDIAC FAILURE
     Dosage: 40MG IN THE MORNING
  10. PANTOPRAZOLE SODIUM [Concomitant]
     Dosage: 40MG AT NIGHT
     Dates: start: 20110701
  11. ARIXTRA [Suspect]
     Indication: ATRIAL FIBRILLATION
     Dosage: 5MG PER DAY
     Route: 058
     Dates: start: 20110701, end: 20110727

REACTIONS (7)
  - CEREBRAL HAEMORRHAGE [None]
  - SUBDURAL HAEMATOMA [None]
  - TRAUMATIC HAEMATOMA [None]
  - OFF LABEL USE [None]
  - COMA [None]
  - HAEMOGLOBIN DECREASED [None]
  - BRAIN DEATH [None]
